FAERS Safety Report 18541659 (Version 2)
Quarter: 2022Q3

REPORT INFORMATION
  Report Type: Spontaneous
  Country: US (occurrence: US)
  Receive Date: 20201124
  Receipt Date: 20220729
  Transmission Date: 20221026
  Serious: Yes (Hospitalization, Other)
  Sender: FDA-Public Use
  Company Number: US-PURDUE-USA-2020-0162754

PATIENT
  Age: 64 Year
  Sex: Female

DRUGS (17)
  1. OXYCONTIN [Suspect]
     Active Substance: OXYCODONE HYDROCHLORIDE
     Indication: Pain
     Dosage: UNK
     Route: 048
  2. OXYCONTIN [Suspect]
     Active Substance: OXYCODONE HYDROCHLORIDE
     Indication: Fibromyalgia
  3. OXYCODONE HYDROCHLORIDE [Suspect]
     Active Substance: OXYCODONE HYDROCHLORIDE
     Indication: Arthralgia
     Dosage: UNKNOWN
     Route: 048
  4. HYDROCODONE BITARTRATE AND ACETAMINOPHEN [Suspect]
     Active Substance: ACETAMINOPHEN\HYDROCODONE BITARTRATE
     Indication: Product used for unknown indication
     Dosage: 7.5-325
     Route: 048
  5. TRAMADOL [Suspect]
     Active Substance: TRAMADOL
     Indication: Product used for unknown indication
     Dosage: UNKNOWN
     Route: 048
  6. METHADONE HYDROCHLORIDE [Suspect]
     Active Substance: METHADONE HYDROCHLORIDE
     Indication: Product used for unknown indication
     Dosage: 10 MG, UNK
     Route: 048
  7. PROMETHAZINE [Concomitant]
     Active Substance: PROMETHAZINE HYDROCHLORIDE
     Indication: Product used for unknown indication
     Dosage: 25 MG, UNK
     Route: 065
  8. ATROPINE\DIPHENOXYLATE [Concomitant]
     Active Substance: ATROPINE\DIPHENOXYLATE
     Indication: Product used for unknown indication
     Dosage: UNK
     Route: 048
  9. AZITHROMYCIN [Concomitant]
     Active Substance: AZITHROMYCIN
     Indication: Product used for unknown indication
     Dosage: 250 MG, UNK
     Route: 048
  10. CLONAZEPAM [Concomitant]
     Active Substance: CLONAZEPAM
     Indication: Product used for unknown indication
     Dosage: 1 MG, UNK
     Route: 048
  11. AMOXICILLIN [Concomitant]
     Active Substance: AMOXICILLIN
     Indication: Product used for unknown indication
     Dosage: 500 MG, UNK
     Route: 048
  12. GABAPENTIN [Concomitant]
     Active Substance: GABAPENTIN
     Indication: Product used for unknown indication
     Dosage: 400 MG, UNK
     Route: 048
  13. METOCLOPRAMIDE [Concomitant]
     Active Substance: METOCLOPRAMIDE
     Indication: Product used for unknown indication
     Dosage: 5 MG, UNK
     Route: 048
  14. LISINOPRIL [Concomitant]
     Active Substance: LISINOPRIL
     Indication: Product used for unknown indication
     Dosage: 2.5 MG, UNK
     Route: 048
  15. FLUVIRINE [Concomitant]
     Indication: Product used for unknown indication
     Dosage: UNK
     Route: 065
     Dates: start: 2011, end: 2012
  16. BENZONATATE [Concomitant]
     Active Substance: BENZONATATE
     Indication: Product used for unknown indication
     Dosage: 100 MG, UNK
     Route: 048
  17. CONTOUR [Concomitant]
     Indication: Product used for unknown indication
     Dosage: UNK
     Route: 065

REACTIONS (41)
  - Lithotripsy [Unknown]
  - Hip surgery [Unknown]
  - Coronary angioplasty [Unknown]
  - Cholecystectomy [Unknown]
  - Cataract operation [Unknown]
  - Type V hyperlipidaemia [Unknown]
  - Sjogren^s syndrome [Unknown]
  - Overdose [Unknown]
  - Drug dependence [Unknown]
  - Transient ischaemic attack [Unknown]
  - Cerebrovascular accident [Unknown]
  - Learning disability [Unknown]
  - Developmental delay [Unknown]
  - Microvascular coronary artery disease [Unknown]
  - Vitreous detachment [Unknown]
  - Renal failure [Unknown]
  - Chronic kidney disease [Unknown]
  - Cardiac disorder [Unknown]
  - Myocardial infarction [Unknown]
  - Nephrolithiasis [Unknown]
  - Peptic ulcer [Unknown]
  - Type 2 diabetes mellitus [Unknown]
  - Gastrooesophageal reflux disease [Unknown]
  - Fibromyalgia [Unknown]
  - Essential hypertension [Unknown]
  - Arthralgia [Unknown]
  - Hypomagnesaemia [Unknown]
  - Pain [Unknown]
  - Pollakiuria [Unknown]
  - Seasonal allergy [Unknown]
  - Post procedural diarrhoea [Unknown]
  - Anxiety [Unknown]
  - Osteoarthritis [Unknown]
  - Dermal cyst [Unknown]
  - Urinary incontinence [Unknown]
  - Arthritis [Unknown]
  - Skin lesion [Unknown]
  - Breast mass [Unknown]
  - Fatigue [Unknown]
  - Corrective lens user [Unknown]
  - Renal artery embolisation [Unknown]

NARRATIVE: CASE EVENT DATE: 20121022
